FAERS Safety Report 20771095 (Version 1)
Quarter: 2022Q2

REPORT INFORMATION
  Report Type: Spontaneous
  Country: IT (occurrence: IT)
  Receive Date: 20220429
  Receipt Date: 20220429
  Transmission Date: 20220720
  Serious: Yes (Death, Life-Threatening, Other)
  Sender: FDA-Public Use
  Company Number: IT-AMGEN-ITASP2022070840

PATIENT

DRUGS (9)
  1. FILGRASTIM [Suspect]
     Active Substance: FILGRASTIM
     Indication: Product used for unknown indication
     Dosage: 10 MICROGRAM/KILOGRAM, QD
     Route: 065
  2. MELPHALAN [Concomitant]
     Active Substance: MELPHALAN
     Dosage: 200 MILLIGRAM/SQ. METER
  3. CYTOXAN [Concomitant]
     Active Substance: CYCLOPHOSPHAMIDE
     Dosage: 14.5 MILLIGRAM/KILOGRAM (DAY FIVE AND SIX)
  4. CYTOXAN [Concomitant]
     Active Substance: CYCLOPHOSPHAMIDE
     Dosage: 50 MILLIGRAM/KILOGRAM (DAYS +3 AND +4)
  5. FLUDARABINE [Concomitant]
     Active Substance: FLUDARABINE PHOSPHATE
     Dosage: 30 MILLIGRAM/SQ. METER (DAY TWO TO DAY SIX)
  6. MYCOPHENOLATE MOFETIL [Concomitant]
     Active Substance: MYCOPHENOLATE MOFETIL
     Dosage: 15 MILLIGRAM/KILOGRAM, QD
  7. TACROLIMUS [Concomitant]
     Active Substance: TACROLIMUS
     Dosage: 1 MILLIGRAM
     Route: 042
  8. TACROLIMUS [Concomitant]
     Active Substance: TACROLIMUS
     Dosage: 1 MILLIGRAM
     Route: 048
  9. CYCLOSPORINE [Concomitant]
     Active Substance: CYCLOSPORINE
     Dosage: 3 MILLIGRAM/KILOGRAM

REACTIONS (29)
  - Death [Fatal]
  - Pneumonia influenzal [Fatal]
  - Pneumonia respiratory syncytial viral [Fatal]
  - JC virus infection [Fatal]
  - Progressive multifocal leukoencephalopathy [Fatal]
  - Aspergillus infection [Fatal]
  - Lymphoma [Fatal]
  - Septic shock [Fatal]
  - Hepatic failure [Fatal]
  - Pneumonia cytomegaloviral [Fatal]
  - Acute graft versus host disease in liver [Unknown]
  - Acute graft versus host disease [Unknown]
  - Chronic graft versus host disease [Unknown]
  - Transplant failure [Unknown]
  - Viral infection [Unknown]
  - Bacterial infection [Unknown]
  - Fungal infection [Unknown]
  - Cytomegalovirus infection reactivation [Unknown]
  - Epstein-Barr virus infection [Unknown]
  - Cystitis viral [Unknown]
  - Respiratory syncytial virus infection [Unknown]
  - Pneumonia herpes viral [Unknown]
  - Bacterial sepsis [Unknown]
  - Pneumonia bacterial [Unknown]
  - Systemic candida [Unknown]
  - Acute graft versus host disease in skin [Unknown]
  - BK virus infection [Unknown]
  - Pneumonia viral [Unknown]
  - Pneumonia fungal [Unknown]
